FAERS Safety Report 8600836-7 (Version None)
Quarter: 2012Q3

REPORT INFORMATION
  Report Type: 
  Country: None (occurrence: None)
  Receive Date: 20120817
  Receipt Date: 20120808
  Transmission Date: 20120928
  Serious: Yes (Life-Threatening)
  Sender: FDA-Public Use
  Company Number: GB-JNJFOC-20120803690

PATIENT
  Sex: Female
  Weight: 63.7 kg

DRUGS (5)
  1. INFLIXIMAB, RECOMBINANT [Suspect]
     Indication: CROHN'S DISEASE
     Route: 042
  2. AZATHIOPRINE SODIUM [Concomitant]
  3. INFLIXIMAB, RECOMBINANT [Suspect]
     Dosage: 13TH
     Route: 042
     Dates: end: 20120718
  4. PREDNISONE TAB [Concomitant]
  5. MESALAMINE [Concomitant]

REACTIONS (2)
  - ANAPHYLACTIC REACTION [None]
  - INFUSION RELATED REACTION [None]
